FAERS Safety Report 5046154-8 (Version None)
Quarter: 2006Q2

REPORT INFORMATION
  Report Type: 
  Country: None (occurrence: None)
  Receive Date: 20060629
  Receipt Date: 20060614
  Transmission Date: 20061013
  Serious: Yes (Hospitalization)
  Sender: FDA-Public Use
  Company Number: 2006S1005502

PATIENT
  Age: 47 Year
  Sex: Male

DRUGS (2)
  1. CLOZAPINE [Suspect]
     Indication: PSYCHOTIC DISORDER
     Dosage: 50 MG;HS;ORAL
     Route: 048
     Dates: start: 20011201, end: 20060601
  2. VALPROATE SODIUM [Concomitant]

REACTIONS (2)
  - GRANULOCYTOPENIA [None]
  - TREATMENT NONCOMPLIANCE [None]
